FAERS Safety Report 7184031-7 (Version None)
Quarter: 2010Q4

REPORT INFORMATION
  Report Type: 
  Country: None (occurrence: None)
  Receive Date: 20101222
  Receipt Date: 20101208
  Transmission Date: 20110411
  Serious: Yes (Hospitalization, Disabling, Other)
  Sender: FDA-Public Use
  Company Number: PHHY2010AU23443

PATIENT
  Age: 57 Year
  Sex: Male

DRUGS (2)
  1. AFINITOR [Suspect]
     Indication: RENAL CELL CARCINOMA
     Dosage: 10 MG, PER DAY
     Route: 048
  2. AFINITOR [Suspect]
     Dosage: 5 MG

REACTIONS (6)
  - CEREBROVASCULAR ACCIDENT [None]
  - DECREASED APPETITE [None]
  - DYSPHAGIA [None]
  - MOUTH ULCERATION [None]
  - ORAL DISCOMFORT [None]
  - ORAL PAIN [None]
